FAERS Safety Report 21395483 (Version 1)
Quarter: 2022Q3

REPORT INFORMATION
  Report Type: Spontaneous
  Country: DE (occurrence: DE)
  Receive Date: 20220930
  Receipt Date: 20220930
  Transmission Date: 20221027
  Serious: Yes (Hospitalization)
  Sender: FDA-Public Use
  Company Number: DE-ADRED-08118-01

PATIENT
  Age: 83 Year
  Sex: Female

DRUGS (6)
  1. METFORMIN\SITAGLIPTIN [Interacting]
     Active Substance: METFORMIN\SITAGLIPTIN
     Dosage: 1000/50 MG, 1-0-1-0
  2. TRULICITY [Interacting]
     Active Substance: DULAGLUTIDE
     Dosage: 1.5 MG, SUNDAY MORNING
  3. ENALAPRIL [Concomitant]
     Active Substance: ENALAPRIL
     Dosage: 10 MG, 1-0-1-0
  4. VITAMIN B12 [Concomitant]
     Active Substance: CYANOCOBALAMIN
     Dosage: 1 MG, 1-0-0-0
  5. APIXABAN [Concomitant]
     Active Substance: APIXABAN
     Dosage: 5 MG, 1-0-1-0
  6. METOPROLOL [Concomitant]
     Active Substance: METOPROLOL
     Dosage: 47.5 MG, 1-0-1-0

REACTIONS (10)
  - Faeces pale [Unknown]
  - Tremor [Unknown]
  - Chromaturia [Unknown]
  - Decreased appetite [Unknown]
  - Weight decreased [Unknown]
  - Cholelithiasis obstructive [Unknown]
  - Jaundice [Unknown]
  - Cholestasis [Unknown]
  - Pruritus [Unknown]
  - Labelled drug-drug interaction medication error [Unknown]
